FAERS Safety Report 5213925-4 (Version None)
Quarter: 2007Q1

REPORT INFORMATION
  Report Type: 
  Country: None (occurrence: None)
  Receive Date: 20070117
  Receipt Date: 20070104
  Transmission Date: 20070707
  Serious: Yes (Hospitalization)
  Sender: FDA-Public Use
  Company Number: 2006PV023810

PATIENT
  Age: 57 Year
  Sex: Female

DRUGS (23)
  1. BYETTA [Suspect]
     Indication: DIABETES MELLITUS NON-INSULIN-DEPENDENT
     Dosage: 5 MCG; BID; SC, SEE IMAGE
     Route: 058
     Dates: start: 20060101, end: 20060101
  2. BYETTA [Suspect]
     Indication: DIABETES MELLITUS NON-INSULIN-DEPENDENT
     Dosage: 5 MCG; BID; SC, SEE IMAGE
     Route: 058
     Dates: start: 20060920
  3. GLUCOPHAGE [Concomitant]
  4. GLIMEPIRIDE [Concomitant]
  5. SYNTHROID [Concomitant]
  6. CYTOMEL [Concomitant]
  7. AMARYL [Concomitant]
  8. POTASSIUM CHLORIDE [Concomitant]
  9. DEMADEX [Concomitant]
  10. ADVAIR DISKUS 250/50 [Concomitant]
  11. COZAAR [Concomitant]
  12. SINGULAIR [Concomitant]
  13. COREG [Concomitant]
  14. NIEFEREX FORTE [Concomitant]
  15. ALBUTEROL [Concomitant]
  16. LORCET-HD [Concomitant]
  17. ASPIRIN [Concomitant]
  18. TYLENOL [Concomitant]
  19. OMEGA FISH OIL [Concomitant]
  20. VITAMIN B COMPLEX CAP [Concomitant]
  21. CENTRUM [Concomitant]
  22. VITAMIN B-12 [Concomitant]
  23. LANOXIN [Concomitant]

REACTIONS (5)
  - BILIARY TRACT DISORDER [None]
  - CHOLECYSTECTOMY [None]
  - HYPOGLYCAEMIA [None]
  - POST CHOLECYSTECTOMY SYNDROME [None]
  - POSTOPERATIVE ADHESION [None]
